FAERS Safety Report 16829719 (Version 1)
Quarter: 2019Q3

REPORT INFORMATION
  Report Type: Spontaneous
  Country: US (occurrence: US)
  Receive Date: 20190919
  Receipt Date: 20190919
  Transmission Date: 20191005
  Serious: No
  Sender: FDA-Public Use
  Company Number: US-009507513-1909USA003955

PATIENT
  Age: 52 Year
  Sex: Male

DRUGS (2)
  1. TEMODAR [Suspect]
     Active Substance: TEMOZOLOMIDE
     Dosage: TWO ADDITIONAL CYCLES OF TEMOZOLOMIDE AT 320 MG DAILY DAYS 1 THROUGH 5 PER 28 DAYS
     Route: 048
  2. TEMODAR [Suspect]
     Active Substance: TEMOZOLOMIDE
     Indication: GLIOMA
     Dosage: OVER A 1.5 MONTH PERIOD
     Route: 048

REACTIONS (1)
  - Product use in unapproved indication [Unknown]
